FAERS Safety Report 4684243-8 (Version None)
Quarter: 2005Q2

REPORT INFORMATION
  Report Type: 
  Country: None (occurrence: None)
  Receive Date: 20050607
  Receipt Date: 20050127
  Transmission Date: 20051028
  Serious: Yes (Other)
  Sender: FDA-Public Use
  Company Number: PHNU2005DE00712

PATIENT
  Age: 78 Year
  Sex: Female
  Weight: 52 kg

DRUGS (5)
  1. ZOMETA [Suspect]
     Indication: MULTIPLE MYELOMA
     Dosage: 4 MG, QMO
     Route: 042
     Dates: start: 20030501, end: 20041101
  2. ACETYLSALICYLIC ACID [Concomitant]
     Indication: PROPHYLAXIS
     Dosage: 100 MG, QD
     Route: 048
     Dates: start: 20031201
  3. DIPYRONE TAB [Concomitant]
     Indication: PAIN
     Dosage: UNK, PRN
     Route: 065
     Dates: start: 20031201
  4. MELPHALAN [Concomitant]
     Indication: PLASMACYTOMA
     Route: 065
     Dates: start: 20031101, end: 20040801
  5. RADIOTHERAPY [Concomitant]
     Indication: OSTEOLYSIS
     Dosage: RADIOTHERAPY TO RIGHT MANDIBLE
     Route: 061
     Dates: start: 20040401

REACTIONS (8)
  - ABSCESS JAW [None]
  - BONE DEBRIDEMENT [None]
  - DENTAL TREATMENT [None]
  - IMMUNE SYSTEM DISORDER [None]
  - IMPAIRED HEALING [None]
  - JAW OPERATION [None]
  - OSTEONECROSIS [None]
  - PLASTIC SURGERY [None]
